FAERS Safety Report 22261594 (Version 1)
Quarter: 2023Q2

REPORT INFORMATION
  Report Type: Report from Study
  Country: US (occurrence: US)
  Receive Date: 20230427
  Receipt Date: 20230427
  Transmission Date: 20230722
  Serious: Yes (Hospitalization, Other)
  Sender: FDA-Public Use
  Company Number: US-ABBVIE-4743358

PATIENT
  Age: 81 Year
  Sex: Male

DRUGS (2)
  1. IMBRUVICA [Suspect]
     Active Substance: IBRUTINIB
     Indication: Chronic lymphocytic leukaemia
     Route: 048
  2. IMBRUVICA [Suspect]
     Active Substance: IBRUTINIB
     Indication: Chronic lymphocytic leukaemia
     Route: 048
     Dates: end: 20230408

REACTIONS (8)
  - Fall [Unknown]
  - Gait disturbance [Not Recovered/Not Resolved]
  - Head crushing injury [Unknown]
  - Speech disorder [Not Recovered/Not Resolved]
  - Concussion [Unknown]
  - Cerebral haemorrhage [Unknown]
  - Seizure [Unknown]
  - Pain [Unknown]

NARRATIVE: CASE EVENT DATE: 20230408
